FAERS Safety Report 7305968-1 (Version None)
Quarter: 2011Q1

REPORT INFORMATION
  Report Type: 
  Country: None (occurrence: None)
  Receive Date: 20110210
  Receipt Date: 20110203
  Transmission Date: 20110831
  Serious: Yes (Other)
  Sender: FDA-Public Use
  Company Number: 2008-172262-NL

PATIENT
  Age: 39 Year
  Sex: Female
  Weight: 62 kg

DRUGS (3)
  1. IBUPROFEN [Concomitant]
  2. KESTIN (EBASTINE) [Concomitant]
  3. IMPLANON [Suspect]
     Indication: CONTRACEPTION
     Dates: start: 20070403, end: 20081020

REACTIONS (6)
  - METRORRHAGIA [None]
  - ABORTION MISSED [None]
  - DRUG EXPOSURE DURING PREGNANCY [None]
  - PREGNANCY WITH IMPLANT CONTRACEPTIVE [None]
  - RHINITIS ALLERGIC [None]
  - ABORTION SPONTANEOUS [None]
